FAERS Safety Report 8824381 (Version 1)
Quarter: 2012Q4

REPORT INFORMATION
  Report Type: 
  Country: US (occurrence: US)
  Receive Date: 20121004
  Receipt Date: 20121004
  Transmission Date: 20130627
  Serious: Yes (Hospitalization)
  Sender: FDA-Public Use
  Company Number: US-BAYER-2012-102353

PATIENT
  Age: 28 Year
  Sex: Female
  Weight: 46.5 kg

DRUGS (3)
  1. YAZ [Suspect]
  2. FLAGYL [Concomitant]
     Dosage: 500 mg, BID
     Route: 048
     Dates: start: 20101210
  3. DIFLUCAN [Concomitant]
     Dosage: 150 mg, now
     Route: 048
     Dates: start: 20101210

REACTIONS (1)
  - Pulmonary embolism [None]
